FAERS Safety Report 10642837 (Version 1)
Quarter: 2014Q4

REPORT INFORMATION
  Report Type: Spontaneous
  Country: US (occurrence: None)
  Receive Date: 20141121
  Receipt Date: 20141121
  Transmission Date: 20150529
  Serious: No
  Sender: FDA-Public Use
  Company Number: 163-10004-14081607

PATIENT
  Age: 62 Year
  Sex: Female
  Weight: 40.37 kg

DRUGS (1)
  1. OTEZLA [Suspect]
     Active Substance: APREMILAST
     Indication: PRODUCT USED FOR UNKNOWN INDICATION
     Dosage: STARTER PACK, 14 IN 14 D, PO
     Route: 048

REACTIONS (3)
  - Dyspnoea [None]
  - Weight decreased [None]
  - Chest discomfort [None]

NARRATIVE: CASE EVENT DATE: 20140517
